FAERS Safety Report 6192770-X (Version None)
Quarter: 2009Q2

REPORT INFORMATION
  Report Type: 
  Country: None (occurrence: None)
  Receive Date: 20090518
  Receipt Date: 20080501
  Transmission Date: 20091009
  Serious: No
  Sender: FDA-Public Use
  Company Number: US-TYCO HEALTHCARE/MALLINCKRODT-T200800762

PATIENT

DRUGS (7)
  1. OXYCODONE HCL [Suspect]
     Dosage: 1-2 TABLETS, QD
     Route: 048
     Dates: start: 20020101, end: 20030101
  2. ACETAMINOPHEN AND HYDROCODONE BITARTRATE [Suspect]
     Indication: ABDOMINAL PAIN
     Dosage: 1-2 TABLETS, QD
     Route: 048
     Dates: start: 20020101, end: 20030101
  3. MORPHINE [Suspect]
     Indication: ABDOMINAL PAIN
     Dosage: 1-2 TABLETS, QD
     Route: 048
     Dates: start: 20020101, end: 20030101
  4. METHADOSE DISPERSIBLE [Suspect]
     Indication: ABDOMINAL PAIN
     Dosage: 200 MG, QD
     Route: 048
     Dates: start: 20040901, end: 20080401
  5. METHADOSE DISPERSIBLE [Suspect]
     Dosage: 200 MG, QD
     Route: 048
     Dates: start: 20070101, end: 20080401
  6. METHADOSE [Concomitant]
     Indication: ABDOMINAL PAIN
     Dosage: 4 TABLETS DAILY
     Route: 048
     Dates: start: 20080401
  7. METHADONE                          /00068902/ [Concomitant]
     Indication: ABDOMINAL PAIN
     Dosage: 5 TABLETS DAILY
     Route: 048
     Dates: start: 20080401

REACTIONS (7)
  - DRUG INEFFECTIVE [None]
  - DRUG INTOLERANCE [None]
  - EUPHORIC MOOD [None]
  - PERSONALITY CHANGE [None]
  - THINKING ABNORMAL [None]
  - WITHDRAWAL SYNDROME [None]
  - WRONG TECHNIQUE IN DRUG USAGE PROCESS [None]
